FAERS Safety Report 22590282 (Version 1)
Quarter: 2023Q2

REPORT INFORMATION
  Report Type: Spontaneous
  Country: US (occurrence: None)
  Receive Date: 20230609
  Receipt Date: 20230609
  Transmission Date: 20230722
  Serious: No
  Sender: FDA-Public Use
  Company Number: None

PATIENT
  Age: 32 Year
  Sex: Female

DRUGS (1)
  1. HUMIRA [Suspect]
     Active Substance: ADALIMUMAB
     Indication: Colitis ulcerative
     Dosage: OTHER QUANTITY : 40MG/0.8ML;?FREQUENCY : MONTHLY;?
     Route: 058
     Dates: start: 20230328

REACTIONS (3)
  - Herpes zoster [None]
  - Immune system disorder [None]
  - Scab [None]

NARRATIVE: CASE EVENT DATE: 20230505
